FAERS Safety Report 8832907 (Version 1)
Quarter: 2012Q4

REPORT INFORMATION
  Report Type: 
  Country: US (occurrence: US)
  Receive Date: 20121010
  Receipt Date: 20121010
  Transmission Date: 20130627
  Serious: Yes (Other)
  Sender: FDA-Public Use
  Company Number: US-AMGEN-USASP2012063752

PATIENT
  Age: 68 Year
  Sex: Female

DRUGS (4)
  1. PROLIA [Suspect]
     Indication: OSTEOPOROSIS POSTMENOPAUSAL
  2. ESTROGEN [Concomitant]
  3. ESTROGEN [Concomitant]
  4. PROGESTERONE [Concomitant]

REACTIONS (3)
  - Neck exploration [Unknown]
  - Stress fracture [Unknown]
  - Back pain [Not Recovered/Not Resolved]
